FAERS Safety Report 25596627 (Version 2)
Quarter: 2025Q3

REPORT INFORMATION
  Report Type: Report from Study
  Country: CA (occurrence: CA)
  Receive Date: 20250723
  Receipt Date: 20250825
  Transmission Date: 20251020
  Serious: Yes (Other)
  Sender: CELLTRION
  Company Number: CA-CELLTRION INC.-2025CA018993

PATIENT

DRUGS (1)
  1. USTEKINUMAB [Suspect]
     Active Substance: USTEKINUMAB
     Indication: Crohn^s disease
     Dosage: 90 MG, ONCE MONTHLY
     Route: 058
     Dates: start: 20250523

REACTIONS (7)
  - Musculoskeletal stiffness [Unknown]
  - Abdominal discomfort [Unknown]
  - Burning sensation [Unknown]
  - Pain in extremity [Unknown]
  - Headache [Unknown]
  - Intentional product use issue [Unknown]
  - Intentional dose omission [Unknown]

NARRATIVE: CASE EVENT DATE: 20250523
